FAERS Safety Report 9406339 (Version 1)
Quarter: 2013Q3

REPORT INFORMATION
  Report Type: Report from Study
  Country: GB (occurrence: GB)
  Receive Date: 20130717
  Receipt Date: 20130717
  Transmission Date: 20140515
  Serious: Yes (Hospitalization)
  Sender: FDA-Public Use
  Company Number: GB-ROCHE-1246772

PATIENT
  Sex: Female
  Weight: 72 kg

DRUGS (2)
  1. TOCILIZUMAB [Suspect]
     Indication: RHEUMATOID ARTHRITIS
     Route: 065
     Dates: start: 20121105, end: 20121211
  2. METHOTREXATE [Concomitant]

REACTIONS (2)
  - Hip fracture [Unknown]
  - Bone erosion [Unknown]
